FAERS Safety Report 9584859 (Version 2)
Quarter: 2013Q4

REPORT INFORMATION
  Report Type: Spontaneous
  Country: US (occurrence: US)
  Receive Date: 20131002
  Receipt Date: 20131002
  Transmission Date: 20140711
  Serious: No
  Sender: FDA-Public Use
  Company Number: US-AMGEN-USASP2013051193

PATIENT
  Age: 52 Year
  Sex: Female
  Weight: 83.9 kg

DRUGS (6)
  1. ENBREL [Suspect]
     Indication: PSORIASIS
     Dosage: 50 MG, 2 TIMES/WK
     Route: 058
     Dates: start: 20021205
  2. DAYPRO [Concomitant]
     Indication: ARTHRITIS
     Dosage: 600 MG, BID
     Route: 048
  3. DICLOFENAC SODIUM [Concomitant]
     Indication: ARTHRITIS
     Dosage: UNK
     Route: 048
  4. LEVOTHYROXINE SODIUM [Concomitant]
     Indication: HYPOTHYROIDISM
     Dosage: UNK
     Route: 048
  5. TRAMADOL [Concomitant]
     Indication: PAIN
     Dosage: UNK
     Route: 048
  6. LYRICA [Concomitant]
     Indication: PAIN
     Dosage: UNK
     Route: 048

REACTIONS (3)
  - Skin plaque [Recovered/Resolved]
  - Condition aggravated [Recovered/Resolved]
  - Bronchitis [Recovered/Resolved]
